FAERS Safety Report 20714108 (Version 4)
Quarter: 2022Q2

REPORT INFORMATION
  Report Type: Spontaneous
  Country: CA (occurrence: CA)
  Receive Date: 20220415
  Receipt Date: 20220524
  Transmission Date: 20220721
  Serious: Yes (Other)
  Sender: FDA-Public Use
  Company Number: CA-PFIZER INC-202200526041

PATIENT
  Age: 45 Year
  Sex: Male

DRUGS (4)
  1. SUTENT [Suspect]
     Active Substance: SUNITINIB MALATE
     Indication: Metastatic renal cell carcinoma
     Dosage: 50 MG, 2 WEEKS ON FOLLOWED BY 2 WEEKS OFF
     Dates: start: 20220422
  2. DIAZEPAM [Concomitant]
     Active Substance: DIAZEPAM
     Dosage: UNK
     Route: 065
  3. PANTOPRAZOLE SODIUM [Concomitant]
     Active Substance: PANTOPRAZOLE SODIUM
     Dosage: UNK
     Route: 065
  4. SERTRALINE [Concomitant]
     Active Substance: SERTRALINE HYDROCHLORIDE
     Dosage: UNK
     Route: 065

REACTIONS (7)
  - Dysdiadochokinesis [Unknown]
  - Memory impairment [Unknown]
  - Ataxia [Unknown]
  - Behaviour disorder [Unknown]
  - Speech disorder [Unknown]
  - Neurological symptom [Unknown]
  - Hepatic enzyme increased [Unknown]
